FAERS Safety Report 4392124-2 (Version None)
Quarter: 2004Q3

REPORT INFORMATION
  Report Type: 
  Country: None (occurrence: None)
  Receive Date: 20040708
  Receipt Date: 20040527
  Transmission Date: 20050211
  Serious: Yes (Life-Threatening, Other)
  Sender: FDA-Public Use
  Company Number: JP-BRISTOL-MYERS SQUIBB COMPANY-12598751

PATIENT
  Age: 56 Year
  Sex: Female

DRUGS (2)
  1. TAXOL [Suspect]
     Indication: UTERINE CANCER
     Dosage: SECOND DAY OF THERAPY 28-APR-2004
     Route: 042
     Dates: start: 20040401, end: 20040401
  2. PARAPLATIN [Suspect]
     Indication: UTERINE CANCER
     Route: 042
     Dates: start: 20040401, end: 20040401

REACTIONS (2)
  - EXANTHEM [None]
  - VENTRICULAR EXTRASYSTOLES [None]
